FAERS Safety Report 11339129 (Version 1)
Quarter: 2015Q3

REPORT INFORMATION
  Report Type: Spontaneous
  Country: US (occurrence: US)
  Receive Date: 20150803
  Receipt Date: 20150803
  Transmission Date: 20151125
  Serious: No
  Sender: FDA-Public Use
  Company Number: US-ELI_LILLY_AND_COMPANY-US200904001622

PATIENT
  Sex: Female

DRUGS (2)
  1. KEFLEX [Concomitant]
     Active Substance: CEPHALEXIN
     Indication: STREPTOCOCCAL INFECTION
     Dosage: 250 MG, 2/D
     Route: 065
     Dates: start: 20090401
  2. STRATTERA [Suspect]
     Active Substance: ATOMOXETINE HYDROCHLORIDE
     Indication: ATTENTION DEFICIT/HYPERACTIVITY DISORDER
     Dosage: 40 MG, DAILY (1/D)
     Route: 065
     Dates: start: 20090220

REACTIONS (2)
  - Depressed mood [Unknown]
  - Streptococcal infection [Recovered/Resolved]
